FAERS Safety Report 5757255-0 (Version None)
Quarter: 2008Q2

REPORT INFORMATION
  Report Type: 
  Country: None (occurrence: None)
  Receive Date: 20080528
  Receipt Date: 20080509
  Transmission Date: 20081010
  Serious: Yes (Death)
  Sender: FDA-Public Use
  Company Number: 2008AL004507

PATIENT
  Age: 75 Year
  Sex: Male

DRUGS (4)
  1. DIGOXIN [Suspect]
     Dosage: .25 MG PO DAILY
     Route: 048
  2. ATENOLOL [Concomitant]
  3. COUMADIN [Concomitant]
  4. LASIX [Concomitant]

REACTIONS (2)
  - CARDIAC DISORDER [None]
  - HEART RATE DECREASED [None]
